FAERS Safety Report 7333211 (Version 8)
Quarter: 2013Q4

REPORT INFORMATION
  Report Type: Spontaneous
  Country: DE (occurrence: DE)
  Receive Date: 20100326
  Receipt Date: 20131202
  Transmission Date: 20140711
  Serious: Yes (Other)
  Sender: FDA-Public Use
  Company Number: PHHY2010DE17478

PATIENT
  Age: 57 Year
  Sex: Male

DRUGS (8)
  1. LEPONEX [Suspect]
     Dosage: 225 MG, DAILY
     Route: 048
     Dates: start: 1997
  2. LEPONEX [Suspect]
     Dosage: 100 MG, UNK
     Route: 048
  3. LEPONEX [Suspect]
     Dosage: 150 MG, QD
     Route: 048
     Dates: start: 201106
  4. LEPONEX [Suspect]
     Dosage: 125 MG, QD
     Route: 048
  5. LEPONEX [Suspect]
     Dosage: 100 MG, QD
     Route: 048
     Dates: start: 201311
  6. DIAZEPAM [Concomitant]
     Dosage: 3 TABLETS/ NIGHT
     Route: 048
  7. DIAZEPAM [Concomitant]
     Dosage: 2 TABLETS AT NIGHT
     Route: 048
  8. INVEGA (PALIPERIDONE) [Concomitant]
     Dosage: 1 DF PER DAY

REACTIONS (10)
  - Carcinoembryonic antigen increased [Not Recovered/Not Resolved]
  - Cardiovascular insufficiency [Unknown]
  - Coagulopathy [Recovered/Resolved]
  - Hyperhomocysteinaemia [Recovering/Resolving]
  - Depression [Recovered/Resolved]
  - Type 2 diabetes mellitus [Recovering/Resolving]
  - Hypersomnia [Unknown]
  - Haemoglobin decreased [Not Recovered/Not Resolved]
  - Fatigue [Recovering/Resolving]
  - Sedation [Recovered/Resolved]
